FAERS Safety Report 4276283-8 (Version None)
Quarter: 2004Q1

REPORT INFORMATION
  Report Type: 
  Country: None (occurrence: None)
  Receive Date: 20040116
  Receipt Date: 20040105
  Transmission Date: 20041129
  Serious: Yes (Death)
  Sender: FDA-Public Use
  Company Number: 200880

PATIENT
  Age: 77 Year
  Sex: Male
  Weight: 64.9 kg

DRUGS (15)
  1. RITUXAN [Suspect]
     Indication: CHRONIC LYMPHOCYTIC LEUKAEMIA
     Dosage: 375 MG/M2, INTRAVENOUS
     Route: 042
     Dates: start: 20030210, end: 20030224
  2. METHYLPREDNISOLONE [Suspect]
     Indication: CHRONIC LYMPHOCYTIC LEUKAEMIA
     Dosage: 1G/M2, INTRAVENOUS
     Route: 042
     Dates: start: 20030207
  3. ALLOPURINOL [Concomitant]
  4. CLONAZEPAM [Concomitant]
  5. DAPSONE [Concomitant]
  6. DIFLUCAN [Concomitant]
  7. CHLORPHENTERMINE (CHLORPHENTERMINE HYDROCHLORIDE) [Concomitant]
  8. CALCIUM CARBONATE (CALCIUM CARBONATE) [Concomitant]
  9. ZANTAC [Concomitant]
  10. SYNTHROID [Concomitant]
  11. TERAZOSIN (TERAZOSIN HYDROCHLORIDE) [Concomitant]
  12. MULTI-VITAMINS [Concomitant]
  13. VALTREX [Concomitant]
  14. PROTONIX [Concomitant]
  15. VITAMIN E [Concomitant]

REACTIONS (22)
  - AORTIC CALCIFICATION [None]
  - ASCITES [None]
  - BLOOD LACTATE DEHYDROGENASE INCREASED [None]
  - CHROMATURIA [None]
  - DILATATION ATRIAL [None]
  - DRUG TOXICITY [None]
  - FAECES PALE [None]
  - GENERALISED OEDEMA [None]
  - HAEMOGLOBIN DECREASED [None]
  - HAEMOPTYSIS [None]
  - HEPATIC ENZYME INCREASED [None]
  - HEPATOMEGALY [None]
  - HYPERBILIRUBINAEMIA [None]
  - JAUNDICE [None]
  - ORTHOPNOEA [None]
  - PERICARDIAL EFFUSION [None]
  - PLATELET COUNT DECREASED [None]
  - PLEURAL EFFUSION [None]
  - PRODUCTIVE COUGH [None]
  - RENAL FAILURE [None]
  - SPUTUM DISCOLOURED [None]
  - WHITE BLOOD CELL COUNT DECREASED [None]
